FAERS Safety Report 7257214-5 (Version None)
Quarter: 2011Q1

REPORT INFORMATION
  Report Type: 
  Country: None (occurrence: None)
  Receive Date: 20110129
  Receipt Date: 20100628
  Transmission Date: 20110831
  Serious: No
  Sender: FDA-Public Use
  Company Number: US-ABBOTT-10P-163-0654092-00

PATIENT
  Age: 25 Year
  Sex: Female

DRUGS (8)
  1. HUMIRA [Suspect]
     Indication: ANKYLOSING SPONDYLITIS
  2. DEXEDRINE [Concomitant]
     Indication: NARCOLEPSY
     Dosage: 15-30 MG DAILY
  3. ORAL CONTRACEPTIVE [Concomitant]
     Indication: CONTRACEPTION
     Route: 048
  4. XYREM [Concomitant]
     Indication: NARCOLEPSY
     Dosage: 0.3-0.4 ML TWICE DAILY
  5. CELEBREX [Concomitant]
     Indication: ANKYLOSING SPONDYLITIS
  6. VALERIAN OTC [Concomitant]
     Indication: PRODUCT USED FOR UNKNOWN INDICATION
  7. TRAMADOL HCL [Concomitant]
     Indication: ANKYLOSING SPONDYLITIS
     Dosage: 1-2 PILLS AS NEEDED
  8. IMITREX [Concomitant]
     Indication: MIGRAINE

REACTIONS (3)
  - LYMPHOCYTE COUNT DECREASED [None]
  - BLOOD TEST ABNORMAL [None]
  - NEUTROPHIL COUNT INCREASED [None]
